FAERS Safety Report 21455831 (Version 2)
Quarter: 2022Q4

REPORT INFORMATION
  Report Type: Spontaneous
  Country: JP (occurrence: JP)
  Receive Date: 20221014
  Receipt Date: 20221019
  Transmission Date: 20230112
  Serious: Yes (Other)
  Sender: FDA-Public Use
  Company Number: JP-UCBJ-CD202208502UCBPHAPROD

PATIENT

DRUGS (1)
  1. LEVETIRACETAM [Suspect]
     Active Substance: LEVETIRACETAM
     Indication: Epilepsy
     Dosage: UNK
     Route: 048

REACTIONS (18)
  - Epilepsy [Unknown]
  - Dystonia [Unknown]
  - Irritability [Unknown]
  - Anxiety [Unknown]
  - Hyperkinesia [Unknown]
  - Impulsive behaviour [Unknown]
  - Somnolence [Unknown]
  - Dizziness [Unknown]
  - Nasopharyngitis [Unknown]
  - Oropharyngeal discomfort [Unknown]
  - Malaise [Unknown]
  - Discouragement [Unknown]
  - Fatigue [Unknown]
  - Depressed mood [Unknown]
  - Influenza like illness [Unknown]
  - Attention deficit hyperactivity disorder [Unknown]
  - Therapy non-responder [Unknown]
  - Therapeutic product effect incomplete [Unknown]
